FAERS Safety Report 6308014-1 (Version None)
Quarter: 2009Q3

REPORT INFORMATION
  Report Type: 
  Country: None (occurrence: None)
  Receive Date: 20090813
  Receipt Date: 20090804
  Transmission Date: 20100115
  Serious: Yes (Hospitalization)
  Sender: FDA-Public Use
  Company Number: A0765935A

PATIENT
  Age: 53 Year
  Sex: Male
  Weight: 118.2 kg

DRUGS (8)
  1. AVANDIA [Suspect]
     Dosage: 8MG SEE DOSAGE TEXT
     Route: 048
     Dates: start: 20030901, end: 20060901
  2. GLUCOPHAGE [Concomitant]
  3. METFORMIN [Concomitant]
  4. XANAX [Concomitant]
     Dates: start: 19900101
  5. PROTONIX [Concomitant]
  6. ZETIA [Concomitant]
  7. AMARYL [Concomitant]
  8. PREDNISONE [Concomitant]

REACTIONS (1)
  - MYOCARDIAL INFARCTION [None]
